FAERS Safety Report 5596187-8 (Version None)
Quarter: 2008Q1

REPORT INFORMATION
  Report Type: 
  Country: None (occurrence: None)
  Receive Date: 20080118
  Receipt Date: 20080115
  Transmission Date: 20080703
  Serious: Yes (Other)
  Sender: FDA-Public Use
  Company Number: IT-GENENTECH-254382

PATIENT
  Age: 36 Year
  Sex: Female

DRUGS (4)
  1. HERCEPTIN [Suspect]
     Indication: BREAST CANCER
     Dosage: 4 MG/KG, UNK
  2. HERCEPTIN [Suspect]
     Dosage: 2 MG/KG, UNK
  3. HERCEPTIN [Suspect]
     Dosage: UNK, Q3W
     Dates: end: 20060401
  4. PACLITAXEL [Concomitant]
     Indication: BREAST CANCER METASTATIC
     Dosage: UNK, 1/WEEK
     Dates: end: 20040601

REACTIONS (1)
  - METASTASES TO CENTRAL NERVOUS SYSTEM [None]
